FAERS Safety Report 5995833-4 (Version None)
Quarter: 2008Q4

REPORT INFORMATION
  Report Type: 
  Country: None (occurrence: None)
  Receive Date: 20081212
  Receipt Date: 20081203
  Transmission Date: 20090506
  Serious: Yes (Hospitalization)
  Sender: FDA-Public Use
  Company Number: FR-WYE-H07133008

PATIENT
  Sex: Female

DRUGS (2)
  1. OROKEN [Suspect]
     Indication: PYELONEPHRITIS
     Dosage: UNKNOWN
     Route: 048
     Dates: start: 20080501, end: 20080501
  2. ROCEPHIN [Suspect]
     Dosage: UNKNOWN
     Route: 042
     Dates: start: 20080501, end: 20080511

REACTIONS (2)
  - CLOSTRIDIUM DIFFICILE COLITIS [None]
  - DRUG EXPOSURE DURING PREGNANCY [None]
